FAERS Safety Report 13578277 (Version 1)
Quarter: 2017Q2

REPORT INFORMATION
  Report Type: Spontaneous
  Country: US (occurrence: US)
  Receive Date: 20170524
  Receipt Date: 20170524
  Transmission Date: 20170830
  Serious: Yes (Death, Hospitalization, Other)
  Sender: FDA-Public Use
  Company Number: US-PFIZER INC-2017229419

PATIENT
  Age: 57 Year
  Sex: Male

DRUGS (1)
  1. LIPITOR [Suspect]
     Active Substance: ATORVASTATIN CALCIUM
     Dosage: UNK
     Dates: end: 20120721

REACTIONS (5)
  - Cerebrovascular accident [Unknown]
  - Cardiac arrest [Unknown]
  - Diabetes mellitus [Unknown]
  - Seizure [Fatal]
  - Memory impairment [Unknown]

NARRATIVE: CASE EVENT DATE: 20101102
